FAERS Safety Report 16891228 (Version 5)
Quarter: 2020Q2

REPORT INFORMATION
  Report Type: Report from Study
  Country: JP (occurrence: JP)
  Receive Date: 20191007
  Receipt Date: 20200427
  Transmission Date: 20200713
  Serious: Yes (Hospitalization)
  Sender: FDA-Public Use
  Company Number: JP-JNJFOC-20190535253

PATIENT
  Age: 63 Year
  Sex: Male
  Weight: 64 kg

DRUGS (15)
  1. CALONAL [Suspect]
     Active Substance: ACETAMINOPHEN
     Indication: HERPES ZOSTER
     Route: 048
     Dates: start: 20190719, end: 20190720
  2. PREDONINE [Concomitant]
     Active Substance: PREDNISOLONE
     Route: 048
     Dates: start: 20190727, end: 20190728
  3. LOXOPROFEN SODIUM DIHYDRATE [Suspect]
     Active Substance: LOXOPROFEN SODIUM DIHYDRATE
     Indication: HERPES ZOSTER
     Route: 048
     Dates: start: 20190720
  4. PREDONINE [Concomitant]
     Active Substance: PREDNISOLONE
     Route: 048
     Dates: start: 20190729, end: 20190730
  5. METHYCOBAL [Concomitant]
     Active Substance: METHYLCOBALAMIN
     Indication: HERPES ZOSTER
     Route: 048
     Dates: start: 20190719, end: 20190720
  6. DOVOBET [Concomitant]
     Active Substance: BETAMETHASONE\CALCIPOTRIENE
     Indication: ERYTHRODERMIC PSORIASIS
     Route: 065
     Dates: start: 20190417
  7. PREDONINE [Concomitant]
     Active Substance: PREDNISOLONE
     Indication: DRUG ERUPTION
     Route: 048
     Dates: start: 20190721, end: 20190723
  8. TREMFYA [Suspect]
     Active Substance: GUSELKUMAB
     Indication: NAIL PSORIASIS
  9. TREMFYA [Suspect]
     Active Substance: GUSELKUMAB
     Indication: PSORIASIS
  10. VOALLA [Concomitant]
     Indication: ERYTHRODERMIC PSORIASIS
     Route: 065
     Dates: start: 20190417
  11. TREMFYA [Suspect]
     Active Substance: GUSELKUMAB
     Indication: ERYTHRODERMIC PSORIASIS
     Dosage: THE CYCLIC DOSES OF TREMFYA WERE GIVEN ON 07/MAY/2019, 02/JUL/2019, 10/SEP/2019, 19/NOV/2019, 28/JAN
     Route: 058
     Dates: start: 20190403, end: 20190403
  12. PREDONINE [Concomitant]
     Active Substance: PREDNISOLONE
     Route: 048
     Dates: start: 20190731, end: 20190801
  13. ACICLOVIR [Concomitant]
     Active Substance: ACYCLOVIR
     Indication: HERPES ZOSTER
     Route: 065
     Dates: start: 20190719, end: 20190726
  14. PREDONINE [Concomitant]
     Active Substance: PREDNISOLONE
     Route: 048
     Dates: start: 20190724, end: 20190726
  15. NEXIUM [Concomitant]
     Active Substance: ESOMEPRAZOLE MAGNESIUM
     Indication: DRUG ERUPTION
     Route: 048
     Dates: start: 20190720, end: 20190801

REACTIONS (3)
  - Drug eruption [Recovered/Resolved]
  - Herpes zoster [Recovered/Resolved]
  - Nasopharyngitis [Recovered/Resolved]

NARRATIVE: CASE EVENT DATE: 20190501
